FAERS Safety Report 6607862-8 (Version None)
Quarter: 2010Q1

REPORT INFORMATION
  Report Type: 
  Country: None (occurrence: None)
  Receive Date: 20100225
  Receipt Date: 20100225
  Transmission Date: 20100710
  Serious: Yes (Hospitalization)
  Sender: FDA-Public Use
  Company Number: None

PATIENT
  Age: 88 Year
  Sex: Male

DRUGS (1)
  1. ASPIRIN [Suspect]
     Indication: CEREBROVASCULAR ACCIDENT PROPHYLAXIS
     Dosage: 81 MG EVERY DAY PO
     Route: 048
     Dates: start: 20090701, end: 20100208

REACTIONS (5)
  - ANAEMIA [None]
  - CARCINOID TUMOUR [None]
  - GASTROINTESTINAL HAEMORRHAGE [None]
  - LIPOMA [None]
  - SMOOTH MUSCLE CELL NEOPLASM [None]
